FAERS Safety Report 5649201-5 (Version None)
Quarter: 2008Q1

REPORT INFORMATION
  Report Type: 
  Country: None (occurrence: None)
  Receive Date: 20080131
  Receipt Date: 20071001
  Transmission Date: 20080703
  Serious: No
  Sender: FDA-Public Use
  Company Number: US200709006659

PATIENT
  Age: 14 Year
  Sex: Female
  Weight: 81.6 kg

DRUGS (11)
  1. BYETTA [Suspect]
     Indication: WEIGHT DECREASED
     Dosage: 10 UG, DAILY (1/D), DAILY (1/D), SUBCUTANEOUS
     Route: 058
     Dates: start: 20070501
  2. EXENATIDE 10MCG PEN, DISPOSABLE DEVICE (EXENATIDE PEN (10MCG)) PEN,DIS [Concomitant]
  3. METFORMIN HCL [Concomitant]
  4. ACTOS /USA/ (PIOGLITAZONE HYDROCHLORIDE) [Concomitant]
  5. HYDROCHLOROTHIAZIDE [Concomitant]
  6. ENALAPRIL MALEATE [Concomitant]
  7. ASPIRIN [Concomitant]
  8. CHROMIUM PICOLINATE (CHROMIUM PICOLINATE) [Concomitant]
  9. CITRICAL (CALCIUM CARBONATE) [Concomitant]
  10. VITAMIN D [Concomitant]
  11. MAGNESIUM (MAGNESIUM) [Concomitant]

REACTIONS (6)
  - ABDOMINAL PAIN UPPER [None]
  - MALAISE [None]
  - NAUSEA [None]
  - SOMNOLENCE [None]
  - VOMITING [None]
  - WEIGHT DECREASED [None]
